FAERS Safety Report 17398167 (Version 1)
Quarter: 2020Q1

REPORT INFORMATION
  Report Type: Spontaneous
  Country: US (occurrence: US)
  Receive Date: 20200210
  Receipt Date: 20200210
  Transmission Date: 20200409
  Serious: Yes (Death, Disabling, Other)
  Sender: FDA-Public Use
  Company Number: US-SA-2020SA032802

PATIENT
  Sex: Male

DRUGS (1)
  1. GOLD BOND ORIGINAL STRENGTH POWDER [Suspect]
     Active Substance: MENTHOL\ZINC OXIDE
     Dosage: UNK
     Route: 055

REACTIONS (8)
  - Pain [Unknown]
  - Depression [Unknown]
  - Mesothelioma [Fatal]
  - Occupational exposure to product [Fatal]
  - Disability [Unknown]
  - Anxiety [Unknown]
  - Loss of personal independence in daily activities [Unknown]
  - Mental disorder [Unknown]

NARRATIVE: CASE EVENT DATE: 20180327
